FAERS Safety Report 10091369 (Version 2)
Quarter: 2014Q2

REPORT INFORMATION
  Report Type: Spontaneous
  Country: US (occurrence: US)
  Receive Date: 20140421
  Receipt Date: 20140421
  Transmission Date: 20141212
  Serious: No
  Sender: FDA-Public Use
  Company Number: US-GILEAD-2012-0064639

PATIENT
  Age: 52 Year
  Sex: Female

DRUGS (18)
  1. LETAIRIS [Suspect]
     Indication: PULMONARY HYPERTENSION
     Dosage: 5 MG, UNK
     Route: 048
     Dates: start: 20121024
  2. LETAIRIS [Suspect]
     Indication: SCLERODERMA
  3. LETAIRIS [Suspect]
     Indication: CREST SYNDROME
  4. ADDERALL [Concomitant]
  5. SYNTHROID [Concomitant]
  6. FOLIC ACID [Concomitant]
  7. DICYCLOMINE                        /00068601/ [Concomitant]
  8. NITROGLYCERIN [Concomitant]
  9. TIZANIDINE [Concomitant]
  10. SOMA [Concomitant]
  11. TORSEMIDE [Concomitant]
  12. NEXIUM                             /01479302/ [Concomitant]
  13. OXYBUTIN [Concomitant]
  14. ZOFRAN                             /00955301/ [Concomitant]
  15. MUCINEX [Concomitant]
  16. CLONAZEPAM [Concomitant]
  17. AMLODIPINE [Concomitant]
  18. SPIRONOLACTONE [Concomitant]

REACTIONS (10)
  - Cardiomegaly [Unknown]
  - Muscle disorder [Unknown]
  - Pain in extremity [Unknown]
  - Muscle spasms [Unknown]
  - Haematemesis [Unknown]
  - Abdominal pain [Unknown]
  - Headache [Unknown]
  - Anaemia [Unknown]
  - Vomiting [Unknown]
  - Oedema peripheral [Unknown]
